FAERS Safety Report 6883164-X (Version None)
Quarter: 2010Q3

REPORT INFORMATION
  Report Type: 
  Country: None (occurrence: None)
  Receive Date: 20100727
  Receipt Date: 20070712
  Transmission Date: 20110219
  Serious: Yes (Hospitalization, Disabling, Other)
  Sender: FDA-Public Use
  Company Number: US-PFIZER INC-2007008171

PATIENT
  Sex: Male
  Weight: 77.1 kg

DRUGS (2)
  1. CELEBREX [Suspect]
     Indication: PAIN
     Dates: start: 19990419
  2. CELEBREX [Suspect]
     Indication: ARTHRITIS

REACTIONS (2)
  - CEREBROVASCULAR DISORDER [None]
  - MYOCARDIAL INFARCTION [None]
